FAERS Safety Report 6223223-8 (Version None)
Quarter: 2009Q2

REPORT INFORMATION
  Report Type: 
  Country: None (occurrence: None)
  Receive Date: 20090611
  Receipt Date: 20090601
  Transmission Date: 20091009
  Serious: Yes (Hospitalization)
  Sender: FDA-Public Use
  Company Number: GB-ELI_LILLY_AND_COMPANY-GB200904002992

PATIENT
  Age: 72 Year
  Sex: Male

DRUGS (5)
  1. HUMALOG [Suspect]
     Dosage: UNK, 3/D
     Dates: end: 20090402
  2. HUMALOG [Suspect]
     Dates: start: 20090401
  3. HUMALOG MIX 75/25 [Suspect]
     Dosage: 1 D/F, UNK
     Dates: start: 20090403, end: 20090403
  4. HUMALOG MIX 75/25 [Suspect]
     Dosage: 3 D/F, UNK
     Dates: start: 20090404, end: 20090404
  5. HUMALOG MIX 75/25 [Suspect]
     Dosage: 2 D/F, UNK
     Dates: start: 20090405, end: 20090405

REACTIONS (3)
  - BLOOD GLUCOSE FLUCTUATION [None]
  - HOSPITALISATION [None]
  - WRONG DRUG ADMINISTERED [None]
